FAERS Safety Report 7895931-4 (Version None)
Quarter: 2011Q4

REPORT INFORMATION
  Report Type: 
  Country: None (occurrence: None)
  Receive Date: 20111106
  Receipt Date: 20110901
  Transmission Date: 20120403
  Serious: No
  Sender: FDA-Public Use
  Company Number: US-AMGEN-USASP2011044883

PATIENT
  Age: 65 Year
  Sex: Male

DRUGS (1)
  1. ENBREL [Suspect]
     Indication: PSORIATIC ARTHROPATHY
     Dosage: 50 MG, QWK
     Dates: start: 20070601, end: 20110601

REACTIONS (6)
  - NERVE ROOT INJURY LUMBAR [None]
  - INTERVERTEBRAL DISC INJURY [None]
  - PSORIATIC ARTHROPATHY [None]
  - DYSPNOEA [None]
  - NASOPHARYNGITIS [None]
  - JOINT DESTRUCTION [None]
